FAERS Safety Report 20708807 (Version 3)
Quarter: 2025Q1

REPORT INFORMATION
  Report Type: Spontaneous
  Country: ES (occurrence: ES)
  Receive Date: 20220414
  Receipt Date: 20250318
  Transmission Date: 20250409
  Serious: Yes (Life-Threatening, Hospitalization, Other)
  Sender: AUROBINDO
  Company Number: ES-AEMPS-1156274

PATIENT
  Age: 21 Year
  Sex: Male
  Weight: 63 kg

DRUGS (10)
  1. DIAZEPAM [Suspect]
     Active Substance: DIAZEPAM
     Indication: Product used for unknown indication
     Route: 048
     Dates: start: 20220325, end: 20220325
  2. IBUPROFEN [Suspect]
     Active Substance: IBUPROFEN
     Indication: Product used for unknown indication
     Route: 048
     Dates: start: 20220325, end: 20220325
  3. ACETAMINOPHEN [Suspect]
     Active Substance: ACETAMINOPHEN
     Indication: Product used for unknown indication
     Route: 048
     Dates: start: 20220325, end: 20220325
  4. ACETAMINOPHEN [Suspect]
     Active Substance: ACETAMINOPHEN
     Dosage: 40 GRAM (40 GRAMS (40 TABLETS)
     Route: 048
     Dates: start: 20220325, end: 20220325
  5. DESLORATADINE [Suspect]
     Active Substance: DESLORATADINE
     Indication: Product used for unknown indication
     Dosage: 40 MILLIGRAM ( 40 MG (8 PILLS))
     Route: 048
     Dates: start: 20220325, end: 20220325
  6. DOXYLAMINE [Suspect]
     Active Substance: DOXYLAMINE
     Indication: Product used for unknown indication
     Route: 048
     Dates: start: 20220325, end: 20220325
  7. DOXYLAMINE [Suspect]
     Active Substance: DOXYLAMINE
     Dosage: 350 MILLIGRAM ( 350MG (14 PILLS))
     Route: 048
     Dates: start: 20220325, end: 20220325
  8. PREDNISOLONE [Suspect]
     Active Substance: PREDNISOLONE
     Indication: Product used for unknown indication
     Route: 048
     Dates: start: 20220325, end: 20220325
  9. OMEPRAZOLE [Suspect]
     Active Substance: OMEPRAZOLE
     Indication: Product used for unknown indication
     Route: 048
     Dates: start: 20220325, end: 20220325
  10. PREDNISONE [Suspect]
     Active Substance: PREDNISONE
     Indication: Product used for unknown indication
     Route: 048
     Dates: start: 20220325, end: 20220325

REACTIONS (2)
  - Suicide attempt [Recovering/Resolving]
  - Depressed level of consciousness [Recovered/Resolved]

NARRATIVE: CASE EVENT DATE: 20220325
